FAERS Safety Report 7631925-1 (Version None)
Quarter: 2011Q3

REPORT INFORMATION
  Report Type: 
  Country: None (occurrence: None)
  Receive Date: 20110725
  Receipt Date: 20110520
  Transmission Date: 20111222
  Serious: No
  Sender: FDA-Public Use
  Company Number: US-BRISTOL-MYERS SQUIBB COMPANY-15744758

PATIENT
  Age: 82 Year
  Sex: Female

DRUGS (1)
  1. COUMADIN [Suspect]
     Dosage: 12APR11 WITHDRAWN AGAIN RESTARTED ON 21APR11,1 DF= 5 MG ONCE DAILY EXCEPT ON WED + 2.5 MG ON WED.
     Dates: start: 19830101

REACTIONS (3)
  - VISUAL IMPAIRMENT [None]
  - INTERNATIONAL NORMALISED RATIO INCREASED [None]
  - NERVOUSNESS [None]
